FAERS Safety Report 21847907 (Version 1)
Quarter: 2023Q1

REPORT INFORMATION
  Report Type: Spontaneous
  Country: US (occurrence: US)
  Receive Date: 20230111
  Receipt Date: 20230111
  Transmission Date: 20230418
  Serious: No
  Sender: FDA-Public Use
  Company Number: US-BEH-2023153862

PATIENT
  Age: 33 Year
  Sex: Female
  Weight: 116.55 kg

DRUGS (2)
  1. HIZENTRA [Suspect]
     Active Substance: HUMAN IMMUNOGLOBULIN G
     Indication: Immunodeficiency common variable
     Dosage: 12 GRAM, QW
     Route: 058
     Dates: start: 202002
  2. HIZENTRA [Suspect]
     Active Substance: HUMAN IMMUNOGLOBULIN G
     Indication: Asthma
     Dosage: 2 GRAM, QW
     Route: 058
     Dates: start: 202002

REACTIONS (6)
  - Weight increased [Unknown]
  - Fluid retention [Unknown]
  - Peripheral swelling [Unknown]
  - Illness [Unknown]
  - No adverse event [Unknown]
  - Off label use [Unknown]

NARRATIVE: CASE EVENT DATE: 20221201
